FAERS Safety Report 24556329 (Version 1)
Quarter: 2024Q4

REPORT INFORMATION
  Report Type: Report from Study
  Country: CA (occurrence: CA)
  Receive Date: 20241028
  Receipt Date: 20241028
  Transmission Date: 20250115
  Serious: Yes (Hospitalization)
  Sender: BIOCON
  Company Number: CA-BIOCON BIOLOGICS LIMITED-BBL2024007851

PATIENT

DRUGS (4)
  1. HULIO [Suspect]
     Active Substance: ADALIMUMAB-FKJP
     Indication: Crohn^s disease
     Dosage: 40 MILLIGRAM, QW, SOLUTION SUBCUTANEOUS
     Route: 058
  2. HULIO [Suspect]
     Active Substance: ADALIMUMAB-FKJP
     Dosage: UNK, SOLUTION SUBCUTANEOUS
     Route: 065
  3. HULIO [Suspect]
     Active Substance: ADALIMUMAB-FKJP
     Dosage: 40 MILLIGRAM, QW, SOLUTION SUBCUTANEOUS
     Route: 058
  4. HULIO [Suspect]
     Active Substance: ADALIMUMAB-FKJP
     Dosage: 80 MILLIGRAM, QW, SOLUTION SUBCUTANEOUS
     Route: 058

REACTIONS (13)
  - Cold sweat [Unknown]
  - Sleep disorder [Unknown]
  - Heart rate irregular [Unknown]
  - Hypotension [Unknown]
  - Micturition urgency [Unknown]
  - Accident [Unknown]
  - Movement disorder [Unknown]
  - Fall [Unknown]
  - Cellulitis [Unknown]
  - Constipation [Unknown]
  - Dehydration [Unknown]
  - Fatigue [Unknown]
  - Off label use [Unknown]
